FAERS Safety Report 25013377 (Version 1)
Quarter: 2025Q1

REPORT INFORMATION
  Report Type: Spontaneous
  Country: US (occurrence: US)
  Receive Date: 20250226
  Receipt Date: 20250226
  Transmission Date: 20250409
  Serious: No
  Sender: UCB
  Company Number: US-UCBSA-2024000100

PATIENT
  Age: 24 Year
  Sex: Female

DRUGS (13)
  1. LEVETIRACETAM [Suspect]
     Active Substance: LEVETIRACETAM
     Indication: Seizure prophylaxis
  2. LEVETIRACETAM [Suspect]
     Active Substance: LEVETIRACETAM
     Indication: Off label use
  3. MAGNESIUM [Concomitant]
     Active Substance: MAGNESIUM
     Indication: Seizure prophylaxis
     Route: 042
  4. MISOPROSTOL [Concomitant]
     Active Substance: MISOPROSTOL
     Indication: Labour induction
  5. OXYCONTIN [Concomitant]
     Active Substance: OXYCODONE HYDROCHLORIDE
     Indication: Labour induction
  6. BUPIVACAINE [Concomitant]
     Active Substance: BUPIVACAINE
     Indication: Epidural analgesia
  7. FENTANYL [Concomitant]
     Active Substance: FENTANYL
     Indication: Epidural analgesia
  8. LIDOCAINE [Concomitant]
     Active Substance: LIDOCAINE
     Indication: Epidural injection
  9. SODIUM BICARBONATE [Concomitant]
     Active Substance: SODIUM BICARBONATE
     Indication: Epidural injection
  10. LORAZEPAM [Concomitant]
     Active Substance: LORAZEPAM
     Indication: Seizure
     Route: 042
  11. HYDRALAZINE [Concomitant]
     Active Substance: HYDRALAZINE HYDROCHLORIDE
     Indication: Pre-eclampsia
     Route: 042
  12. NIFEDIPINE [Concomitant]
     Active Substance: NIFEDIPINE
     Indication: Pre-eclampsia
     Route: 048
  13. LABETALOL [Concomitant]
     Active Substance: LABETALOL
     Indication: Blood pressure increased
     Route: 042

REACTIONS (2)
  - Drug effective for unapproved indication [Unknown]
  - Off label use [Unknown]
